FAERS Safety Report 5815725-0 (Version None)
Quarter: 2008Q3

REPORT INFORMATION
  Report Type: 
  Country: None (occurrence: None)
  Receive Date: 20080717
  Receipt Date: 20080717
  Transmission Date: 20090109
  Serious: Yes (Life-Threatening, Hospitalization)
  Sender: FDA-Public Use
  Company Number: None

PATIENT
  Age: 9 Month
  Sex: Male
  Weight: 9.5255 kg

DRUGS (1)
  1. BABY ORAJEL LIQUID DEL PHARMACEUTICALS/LAB [Suspect]
     Indication: TEETHING
     Dosage: DROPS PO
     Route: 048
     Dates: start: 20080713, end: 20080713

REACTIONS (4)
  - CRYING [None]
  - HYPOTONIA [None]
  - NO REACTION ON PREVIOUS EXPOSURE TO DRUG [None]
  - SKIN DISCOLOURATION [None]
